FAERS Safety Report 5293166-5 (Version None)
Quarter: 2007Q2

REPORT INFORMATION
  Report Type: 
  Country: None (occurrence: None)
  Receive Date: 20070411
  Receipt Date: 20070402
  Transmission Date: 20071010
  Serious: Yes (Disabling, Other)
  Sender: FDA-Public Use
  Company Number: JP-ELI_LILLY_AND_COMPANY-JP200704000729

PATIENT
  Age: 34 Year
  Sex: Male

DRUGS (1)
  1. ZYPREXA [Suspect]
     Dosage: 2.5 MG, DAILY (1/D)
     Route: 048
     Dates: start: 20040101, end: 20050701

REACTIONS (2)
  - MENTAL IMPAIRMENT [None]
  - NEUROLEPTIC MALIGNANT SYNDROME [None]
